FAERS Safety Report 6232105-7 (Version None)
Quarter: 2009Q2

REPORT INFORMATION
  Report Type: 
  Country: None (occurrence: None)
  Receive Date: 20090616
  Receipt Date: 20090605
  Transmission Date: 20091009
  Serious: Yes (Hospitalization, Other)
  Sender: FDA-Public Use
  Company Number: US-WATSON-2008-07477

PATIENT
  Sex: Female
  Weight: 46.712 kg

DRUGS (4)
  1. MYSOLINE [Suspect]
     Indication: CONVULSION
     Dosage: 250 MG, TID
     Route: 048
     Dates: start: 20081001, end: 20081201
  2. XANAX [Concomitant]
     Indication: TREMOR
     Dosage: 0.5 MG, QID
     Route: 065
     Dates: start: 19880101
  3. SUMATRIPTAN SUCCINATE [Concomitant]
     Indication: DRUG USE FOR UNKNOWN INDICATION
     Dosage: UNK
     Route: 065
  4. FOSAMAX [Concomitant]
     Indication: DRUG USE FOR UNKNOWN INDICATION
     Dosage: UNK
     Route: 065

REACTIONS (7)
  - BLOOD PRESSURE INCREASED [None]
  - CONTUSION [None]
  - DRUG INEFFECTIVE [None]
  - FALL [None]
  - HEAD INJURY [None]
  - PERIORBITAL HAEMATOMA [None]
  - SKIN LACERATION [None]
